FAERS Safety Report 4466891-3 (Version None)
Quarter: 2004Q3

REPORT INFORMATION
  Report Type: 
  Country: None (occurrence: None)
  Receive Date: 20040930
  Receipt Date: 20040916
  Transmission Date: 20050211
  Serious: Yes (Hospitalization)
  Sender: FDA-Public Use
  Company Number: 203035

PATIENT
  Age: 51 Year
  Sex: Female

DRUGS (5)
  1. AVONEX [Suspect]
     Indication: MULTIPLE SCLEROSIS
     Dosage: 30 MCG QW IM
     Route: 030
     Dates: start: 20040416
  2. PREVACID [Concomitant]
  3. LIPITOR [Concomitant]
  4. BACLOFEN [Concomitant]
  5. TOPROL-XL [Concomitant]

REACTIONS (2)
  - DISEASE RECURRENCE [None]
  - OPTIC NEURITIS [None]
